FAERS Safety Report 5125068-9 (Version None)
Quarter: 2006Q4

REPORT INFORMATION
  Report Type: 
  Country: None (occurrence: None)
  Receive Date: 20061011
  Receipt Date: 20060425
  Transmission Date: 20070319
  Serious: Yes (Hospitalization, Other)
  Sender: FDA-Public Use
  Company Number: US-BRISTOL-MYERS SQUIBB COMPANY-13357165

PATIENT
  Age: 78 Year
  Sex: Male

DRUGS (7)
  1. ERBITUX [Suspect]
     Indication: NON-SMALL CELL LUNG CANCER
     Dosage: INITIATED ON 29-MAR-2006 = 620 MG.
     Route: 042
     Dates: start: 20060329
  2. CARBOPLATIN [Suspect]
     Indication: NON-SMALL CELL LUNG CANCER
     Route: 042
     Dates: start: 20060329
  3. TAXOTERE [Suspect]
     Indication: NON-SMALL CELL LUNG CANCER
     Route: 042
     Dates: start: 20060329
  4. ATENOLOL [Concomitant]
     Dosage: INITIATED PRE-STUDY.
     Route: 048
  5. LISINOPRIL [Concomitant]
     Dosage: INITIATED PRE-STUDY.
     Route: 048
  6. TYLOX [Concomitant]
     Indication: PAIN
     Dosage: INITIATED PRE-STUDY. 1-2 PO Q 6 HOURS PRN
     Route: 048
  7. SIMVASTIN [Concomitant]
     Route: 048

REACTIONS (3)
  - DEHYDRATION [None]
  - RENAL FAILURE ACUTE [None]
  - URINARY TRACT INFECTION [None]
